FAERS Safety Report 15805446 (Version 2)
Quarter: 2019Q1

REPORT INFORMATION
  Report Type: Spontaneous
  Country: IE (occurrence: IE)
  Receive Date: 20190110
  Receipt Date: 20190124
  Transmission Date: 20190417
  Serious: Yes (Other)
  Sender: FDA-Public Use
  Company Number: IE-TEVA-2019-IE-997057

PATIENT
  Age: 4 Year
  Sex: Female

DRUGS (4)
  1. SALAMOL (GENERIC) [Concomitant]
     Route: 065
  2. BECOTIDE EVOHALER [Concomitant]
  3. MONTELUKAST TEVA [Suspect]
     Active Substance: MONTELUKAST SODIUM
     Dosage: EXP 01/2019
     Dates: start: 20190101
  4. MONTELUKAST TEVA [Suspect]
     Active Substance: MONTELUKAST SODIUM
     Indication: ASTHMA
     Dosage: 4 MILLIGRAM DAILY; EXP 01/2019, NOCTE.
     Route: 048
     Dates: start: 201812, end: 20181215

REACTIONS (5)
  - Sleep terror [Recovered/Resolved]
  - Insomnia [Recovered/Resolved]
  - Euphoric mood [Recovered/Resolved]
  - Hallucination, visual [Recovered/Resolved]
  - Psychomotor hyperactivity [Recovered/Resolved]

NARRATIVE: CASE EVENT DATE: 201812
